FAERS Safety Report 21643005 (Version 5)
Quarter: 2023Q1

REPORT INFORMATION
  Report Type: Report from Study
  Country: US (occurrence: US)
  Receive Date: 20221125
  Receipt Date: 20230131
  Transmission Date: 20230418
  Serious: Yes (Hospitalization)
  Sender: FDA-Public Use
  Company Number: US-ABBVIE-4213959

PATIENT
  Sex: Female

DRUGS (7)
  1. VENCLEXTA [Suspect]
     Active Substance: VENETOCLAX
     Indication: Chronic lymphocytic leukaemia
     Route: 048
     Dates: start: 20221226
  2. VENCLEXTA [Suspect]
     Active Substance: VENETOCLAX
     Indication: Chronic lymphocytic leukaemia
     Route: 048
  3. VENCLEXTA [Suspect]
     Active Substance: VENETOCLAX
     Indication: Chronic lymphocytic leukaemia
     Route: 048
  4. NEULASTA [Concomitant]
     Active Substance: PEGFILGRASTIM
     Indication: Product used for unknown indication
     Dates: start: 2022
  5. DUPIXENT [Suspect]
     Active Substance: DUPILUMAB
     Indication: Product used for unknown indication
     Route: 065
  6. BRUKINSA [Concomitant]
     Active Substance: ZANUBRUTINIB
     Indication: Chronic lymphocytic leukaemia
     Dates: start: 20221101
  7. NEUPOGEN [Concomitant]
     Active Substance: FILGRASTIM
     Indication: Product used for unknown indication
     Dates: start: 2022

REACTIONS (14)
  - Febrile neutropenia [Unknown]
  - Dyspepsia [Unknown]
  - Fatigue [Unknown]
  - Eczema [Unknown]
  - Chest discomfort [Unknown]
  - Platelet count abnormal [Recovering/Resolving]
  - Contusion [Unknown]
  - Haemoglobin decreased [Unknown]
  - Petechiae [Recovered/Resolved]
  - Diarrhoea [Unknown]
  - Neutropenia [Unknown]
  - Somnolence [Unknown]
  - Immunodeficiency [Unknown]
  - Platelet count decreased [Unknown]
